FAERS Safety Report 8624946-3 (Version None)
Quarter: 2012Q3

REPORT INFORMATION
  Report Type: 
  Country: None (occurrence: None)
  Receive Date: 20120827
  Receipt Date: 20120816
  Transmission Date: 20120928
  Serious: Yes (Hospitalization, Other)
  Sender: FDA-Public Use
  Company Number: JP-PFIZER INC-2012198940

PATIENT
  Age: 77 Year
  Sex: Male

DRUGS (5)
  1. UNASYN [Suspect]
     Dosage: 1.5 G, 4X/DAY
     Route: 042
     Dates: start: 20120704, end: 20120722
  2. CLINDAMYCIN HCL [Suspect]
     Dosage: UNK
     Route: 042
     Dates: start: 20120801
  3. CEFTAZIDIME SODIUM [Suspect]
     Dosage: UNK
     Route: 042
  4. FIRSTCIN [Concomitant]
     Dosage: UNK
     Route: 042
     Dates: start: 20120801, end: 20120815
  5. MEROPENEM [Concomitant]
     Dosage: UNK
     Route: 042
     Dates: start: 20120801, end: 20120815

REACTIONS (1)
  - EOSINOPHILIC PNEUMONIA [None]
